FAERS Safety Report 8708658 (Version 2)
Quarter: 2012Q4

REPORT INFORMATION
  Report Type: 
  Country: US (occurrence: None)
  Receive Date: 20120717
  Receipt Date: 20121115
  Transmission Date: 20130627
  Serious: Yes (Death, Hospitalization, Other)
  Sender: FDA-Public Use
  Company Number: 2012PROUSA01622

PATIENT
  Age: 72 Year
  Sex: Male
  Weight: 89.3 kg

DRUGS (3)
  1. PROVENGE [Suspect]
     Indication: PROSTATE CANCER METASTATIC
     Dosage: 250 ML, SINGLE, INTRAVENOUS
     Route: 042
     Dates: start: 20120625, end: 20120625
  2. CASODEX (BICALUTAMIDE) [Concomitant]
  3. LUPRON (LEUPRORELIN ACETATE) [Concomitant]

REACTIONS (5)
  - Pneumonia [None]
  - Pericardial effusion malignant [None]
  - Pulmonary embolism [None]
  - Prostate cancer [None]
  - Pericarditis [None]
